FAERS Safety Report 7681443-X (Version None)
Quarter: 2011Q3

REPORT INFORMATION
  Report Type: 
  Country: None (occurrence: None)
  Receive Date: 20110812
  Receipt Date: 20110803
  Transmission Date: 20111222
  Serious: Yes (Hospitalization)
  Sender: FDA-Public Use
  Company Number: IT-ASTRAZENECA-2011SE45939

PATIENT
  Age: 48 Year
  Sex: Male

DRUGS (4)
  1. OMEPRAZOLE [Suspect]
     Indication: ABDOMINAL DISTENSION
     Route: 048
     Dates: start: 20110711
  2. DIAZEPAM [Suspect]
     Indication: ABDOMINAL DISTENSION
     Route: 048
     Dates: start: 20110711
  3. OMEPRAZOLE [Suspect]
     Indication: ABDOMINAL PAIN UPPER
     Route: 048
     Dates: start: 20110711
  4. SCOPOLAMINE [Suspect]
     Indication: ABDOMINAL PAIN UPPER
     Route: 048
     Dates: start: 20110711

REACTIONS (4)
  - BLOOD BILIRUBIN INCREASED [None]
  - TRANSAMINASES INCREASED [None]
  - CHROMATURIA [None]
  - JAUNDICE [None]
